FAERS Safety Report 10687622 (Version 1)
Quarter: 2014Q4

REPORT INFORMATION
  Report Type: Spontaneous
  Country: IN (occurrence: None)
  Receive Date: 20141230
  Receipt Date: 20141230
  Transmission Date: 20150529
  Serious: Yes (Other)
  Sender: FDA-Public Use
  Company Number: 8003211D

PATIENT
  Age: 23 Year
  Sex: Female

DRUGS (1)
  1. L-THYROXINE [Suspect]
     Active Substance: LEVOTHYROXINE
     Indication: HYPOTHYROIDISM
     Dosage: APPORX 4000 MCG STAT DOSE

REACTIONS (4)
  - Hyperparathyroidism [None]
  - Brown tumour [None]
  - Parathyroid tumour benign [None]
  - Toxicity to various agents [None]
